FAERS Safety Report 9340980 (Version 2)
Quarter: 2013Q3

REPORT INFORMATION
  Report Type: Spontaneous
  Country: PT (occurrence: None)
  Receive Date: 20130531
  Receipt Date: 20130731
  Transmission Date: 20140515
  Serious: Yes (Other)
  Sender: FDA-Public Use
  Company Number: 2013036084

PATIENT
  Age: 14 Month
  Sex: Female

DRUGS (1)
  1. IMMUNE GLOBULIN INTRAVENOUS (HUMAN) 5% SOLVENT/DETERGENT TREATED [Suspect]
     Route: 042

REACTIONS (15)
  - Urinary retention [None]
  - Trismus [None]
  - Feeding disorder of infancy or early childhood [None]
  - Posture abnormal [None]
  - Oral herpes [None]
  - Irritability [None]
  - Hyperexplexia [None]
  - Hypertension [None]
  - Muscle rigidity [None]
  - Myoclonus [None]
  - Eye movement disorder [None]
  - Facial spasm [None]
  - Cyanosis [None]
  - Oxygen saturation decreased [None]
  - Encephalomyelitis [None]
